FAERS Safety Report 4808449-X (Version None)
Quarter: 2005Q4

REPORT INFORMATION
  Report Type: 
  Country: None (occurrence: None)
  Receive Date: 20051025
  Receipt Date: 20051011
  Transmission Date: 20060501
  Serious: Yes (Death, Life-Threatening, Hospitalization)
  Sender: FDA-Public Use
  Company Number: HQWYE036314OCT05

PATIENT
  Age: 54 Year
  Sex: Male

DRUGS (4)
  1. ENBREL [Suspect]
     Indication: RHEUMATOID ARTHRITIS
     Route: 058
     Dates: start: 20041101, end: 20050908
  2. PREDNISOLONE [Suspect]
     Indication: RHEUMATOID ARTHRITIS
     Route: 048
  3. DICLOFENAC [Concomitant]
     Indication: RHEUMATOID ARTHRITIS
     Route: 048
  4. HORMONE NOS [Concomitant]

REACTIONS (9)
  - ARTHROPATHY [None]
  - BACK PAIN [None]
  - FUNGAL INFECTION [None]
  - INTERVERTEBRAL DISCITIS [None]
  - MALAISE [None]
  - PNEUMONIA [None]
  - SEPTIC ARTHRITIS STAPHYLOCOCCAL [None]
  - SEPTIC SHOCK [None]
  - URINARY TRACT INFECTION PSEUDOMONAL [None]
